FAERS Safety Report 5199762-8 (Version None)
Quarter: 2007Q1

REPORT INFORMATION
  Report Type: 
  Country: None (occurrence: None)
  Receive Date: 20070105
  Receipt Date: 20060425
  Transmission Date: 20070707
  Serious: No
  Sender: FDA-Public Use
  Company Number: US-GLAXOSMITHKLINE-A0603258A

PATIENT
  Sex: Male

DRUGS (4)
  1. TAGAMET [Suspect]
     Dosage: 400MG UNKNOWN
     Route: 048
  2. ZANTAC [Suspect]
     Dosage: 150MG UNKNOWN
     Route: 048
  3. PERCOCET [Concomitant]
  4. OXYCONTIN [Concomitant]

REACTIONS (3)
  - ARTHRALGIA [None]
  - DRUG INEFFECTIVE [None]
  - HEADACHE [None]
